FAERS Safety Report 18398305 (Version 1)
Quarter: 2020Q4

REPORT INFORMATION
  Report Type: Spontaneous
  Country: US (occurrence: US)
  Receive Date: 20201019
  Receipt Date: 20201019
  Transmission Date: 20210114
  Serious: Yes (Life-Threatening)
  Sender: FDA-Public Use
  Company Number: None

PATIENT
  Age: 3 Month
  Sex: Female

DRUGS (2)
  1. CHLOROTHIAZIDE. [Suspect]
     Active Substance: CHLOROTHIAZIDE
     Indication: DRUG THERAPY
     Route: 042
     Dates: start: 20200605
  2. FUROSEMIDE. [Suspect]
     Active Substance: FUROSEMIDE
     Indication: DRUG THERAPY
     Route: 042
     Dates: start: 20200528

REACTIONS (1)
  - Hypokalaemia [None]

NARRATIVE: CASE EVENT DATE: 20200814
